FAERS Safety Report 5454938-7 (Version None)
Quarter: 2007Q3

REPORT INFORMATION
  Report Type: 
  Country: None (occurrence: None)
  Receive Date: 20070917
  Receipt Date: 20070905
  Transmission Date: 20080115
  Serious: Yes (Other)
  Sender: FDA-Public Use
  Company Number: US-PFIZER INC-2007075619

PATIENT
  Sex: Female
  Weight: 56.363 kg

DRUGS (2)
  1. CHANTIX [Suspect]
     Indication: SMOKING CESSATION THERAPY
     Dates: start: 20070813, end: 20070902
  2. LOTREL [Concomitant]

REACTIONS (5)
  - APPETITE DISORDER [None]
  - FEELING ABNORMAL [None]
  - FLATULENCE [None]
  - HUNGER [None]
  - MOOD ALTERED [None]
